FAERS Safety Report 9489948 (Version 1)
Quarter: 2013Q3

REPORT INFORMATION
  Report Type: Spontaneous
  Country: PL (occurrence: PL)
  Receive Date: 20130829
  Receipt Date: 20130829
  Transmission Date: 20140515
  Serious: Yes (Hospitalization)
  Sender: FDA-Public Use
  Company Number: PHHY2013PL092275

PATIENT
  Age: 76 Year
  Sex: Female
  Weight: 75 kg

DRUGS (1)
  1. METHOTREXATE [Suspect]
     Indication: POISONING
     Dosage: 15 MG, ONCE/SINGLE

REACTIONS (2)
  - Asthenia [Recovered/Resolved]
  - Oropharyngeal pain [Recovered/Resolved]
